FAERS Safety Report 24693935 (Version 1)
Quarter: 2024Q4

REPORT INFORMATION
  Report Type: Spontaneous
  Country: US (occurrence: US)
  Receive Date: 20241204
  Receipt Date: 20241204
  Transmission Date: 20250115
  Serious: No
  Sender: PACIRA
  Company Number: US-ORG100016242-2023000357

PATIENT
  Age: 70 Year
  Sex: Female

DRUGS (1)
  1. ZILRETTA [Suspect]
     Active Substance: TRIAMCINOLONE ACETONIDE
     Indication: Osteoarthritis
     Dosage: SINGLE DOSE KIT
     Route: 050
     Dates: start: 20231206, end: 20231206

REACTIONS (2)
  - Mobility decreased [Unknown]
  - Drug ineffective [Unknown]
